FAERS Safety Report 15638783 (Version 1)
Quarter: 2018Q4

REPORT INFORMATION
  Report Type: Spontaneous
  Country: US (occurrence: US)
  Receive Date: 20181120
  Receipt Date: 20181120
  Transmission Date: 20190205
  Serious: No
  Sender: FDA-Public Use
  Company Number: US-PERRIGO-18US004678

PATIENT
  Sex: Female

DRUGS (2)
  1. GAS-X [Concomitant]
     Active Substance: DIMETHICONE
     Indication: FLATULENCE
     Dosage: UNKNOWN, PRN
     Route: 048
  2. POLYETHYLENE GLYCOL 3350. [Suspect]
     Active Substance: POLYETHYLENE GLYCOL 3350
     Indication: CONSTIPATION
     Dosage: 8.5 G, QD
     Route: 048
     Dates: start: 20180330

REACTIONS (3)
  - Incorrect product administration duration [Unknown]
  - Flatulence [Unknown]
  - Underdose [Unknown]

NARRATIVE: CASE EVENT DATE: 20180330
